FAERS Safety Report 4566655-6 (Version None)
Quarter: 2005Q1

REPORT INFORMATION
  Report Type: 
  Country: None (occurrence: None)
  Receive Date: 20050126
  Receipt Date: 20050113
  Transmission Date: 20050727
  Serious: Yes (Hospitalization)
  Sender: FDA-Public Use
  Company Number: 2005013853

PATIENT
  Age: 92 Year
  Sex: Female
  Weight: 58.0604 kg

DRUGS (15)
  1. ZOLOFT [Suspect]
     Indication: DISTURBANCE IN ATTENTION
     Dosage: 50 MG (50 MG, 1 IN 1 D), ORAL
     Route: 048
     Dates: start: 20040101
  2. ZOLOFT [Suspect]
     Indication: SLEEP DISORDER
     Dosage: 50 MG (50 MG, 1 IN 1 D), ORAL
     Route: 048
     Dates: start: 20040101
  3. CIPROFLOXACIN [Concomitant]
  4. QUETIAPINE        (QUETIAPINE) [Concomitant]
  5. RAMIPRIL [Concomitant]
  6. FUROSEMIDE [Concomitant]
  7. POTASSIUM CHLORIDE [Concomitant]
  8. OMEPRAZOLE [Concomitant]
  9. DIGOXIN [Concomitant]
  10. TOLTERODINE TARTRATE [Concomitant]
  11. ACETAMINOPHEN [Concomitant]
  12. ATORVASTATIN (ATORVASTATIN) [Concomitant]
  13. NITROFURANTOIN [Concomitant]
  14. DONEPEZIL HCL [Concomitant]
  15. ACETYLSALICYLIC ACID SRT [Concomitant]

REACTIONS (12)
  - ANURIA [None]
  - ANXIETY [None]
  - CONSTIPATION [None]
  - CONTUSION [None]
  - CYSTITIS [None]
  - DRUG INEFFECTIVE [None]
  - EATING DISORDER [None]
  - FALL [None]
  - HALLUCINATION [None]
  - LETHARGY [None]
  - SPEECH DISORDER [None]
  - TREATMENT NONCOMPLIANCE [None]
